FAERS Safety Report 6138813-0 (Version None)
Quarter: 2009Q1

REPORT INFORMATION
  Report Type: 
  Country: None (occurrence: None)
  Receive Date: 20090331
  Receipt Date: 20090326
  Transmission Date: 20090719
  Serious: No
  Sender: FDA-Public Use
  Company Number: US-B.I. PHARMACEUTICALS,INC./RIDGEFIELD-2009-BP-02879BP

PATIENT
  Sex: Male

DRUGS (9)
  1. SPIRIVA [Suspect]
     Indication: EMPHYSEMA
     Dosage: 18MCG
     Dates: start: 20040101
  2. SPIRIVA [Suspect]
     Indication: DYSPNOEA
  3. ADVAIR HFA [Concomitant]
     Indication: DYSPNOEA
  4. AVODART [Concomitant]
     Dosage: .5MG
  5. METOPROLOL TARTRATE [Concomitant]
  6. PLAVIX [Concomitant]
     Dosage: 75MG
  7. SIMVASTATIN [Concomitant]
     Dosage: 40MG
  8. ASPIRIN [Concomitant]
     Dosage: 325MG
  9. ALENDRONATE SODIUM [Concomitant]

REACTIONS (2)
  - PRURITUS [None]
  - RASH [None]
